FAERS Safety Report 4564338-X (Version None)
Quarter: 2005Q1

REPORT INFORMATION
  Report Type: 
  Country: None (occurrence: None)
  Receive Date: 20050128
  Receipt Date: 20041025
  Transmission Date: 20050727
  Serious: Yes (Life-Threatening, Hospitalization, Other)
  Sender: FDA-Public Use
  Company Number: US-GLAXOSMITHKLINE-A0531180A

PATIENT
  Age: 13 Year
  Sex: Male
  Weight: 46 kg

DRUGS (3)
  1. LAMICTAL [Suspect]
     Indication: EPILEPSY
     Route: 048
     Dates: start: 20040917, end: 20041021
  2. TOPAMAX [Concomitant]
     Indication: EPILEPSY
     Dosage: 175MG PER DAY
     Route: 048
     Dates: start: 20040107
  3. ZOLOFT [Concomitant]
     Indication: AFFECTIVE DISORDER
     Dosage: 50MG PER DAY
     Route: 048
     Dates: start: 20040917

REACTIONS (3)
  - CONJUNCTIVITIS [None]
  - OCULAR HYPERAEMIA [None]
  - RASH GENERALISED [None]
